FAERS Safety Report 8560758 (Version 2)
Quarter: 2013Q4

REPORT INFORMATION
  Report Type: Report from Study
  Country: DE (occurrence: DE)
  Receive Date: 20120514
  Receipt Date: 20131101
  Transmission Date: 20140711
  Serious: Yes (Life-Threatening, Hospitalization)
  Sender: FDA-Public Use
  Company Number: DE-BRISTOL-MYERS SQUIBB COMPANY-16583619

PATIENT
  Age: 59 Year
  Sex: Male
  Weight: 61 kg

DRUGS (7)
  1. CETUXIMAB [Suspect]
     Indication: HEAD AND NECK CANCER
     Dates: start: 20120215
  2. CISPLATIN [Suspect]
     Indication: HEAD AND NECK CANCER
     Dates: start: 20120215
  3. 5-FLUOROURACIL [Suspect]
     Indication: HEAD AND NECK CANCER
     Dates: start: 20120215
  4. DOCETAXEL [Suspect]
     Indication: HEAD AND NECK CANCER
     Dates: start: 20120215
  5. DEXAMETHASONE [Concomitant]
     Indication: ANTIINFLAMMATORY THERAPY
     Dates: start: 20120215, end: 20120215
  6. FENISTIL [Concomitant]
     Indication: ANTIALLERGIC THERAPY
     Dates: start: 20120215, end: 20120215
  7. KEVATRIL [Concomitant]
     Indication: ANTIEMETIC SUPPORTIVE CARE
     Dates: start: 20120215, end: 20120215

REACTIONS (1)
  - Neutropenia [Recovered/Resolved]
